FAERS Safety Report 20533188 (Version 1)
Quarter: 2022Q1

REPORT INFORMATION
  Report Type: Spontaneous
  Country: US (occurrence: US)
  Receive Date: 20220301
  Receipt Date: 20220301
  Transmission Date: 20220423
  Serious: Yes (Hospitalization)
  Sender: FDA-Public Use
  Company Number: US-TAKEDA-2022TUS012934

PATIENT
  Age: 77 Year
  Sex: Male
  Weight: 95.238 kg

DRUGS (25)
  1. NINLARO [Suspect]
     Active Substance: IXAZOMIB CITRATE
     Indication: Plasma cell myeloma
     Dosage: 4 MILLIGRAM, 1/WEEK
     Route: 048
     Dates: start: 20220202, end: 20220214
  2. VELCADE [Suspect]
     Active Substance: BORTEZOMIB
     Indication: Product used for unknown indication
     Route: 065
  3. POMALYST [Suspect]
     Active Substance: POMALIDOMIDE
     Indication: Plasma cell myeloma
     Dosage: 4 MILLIGRAM, QD
     Route: 048
     Dates: start: 20210309
  4. IMODIUM [Concomitant]
     Active Substance: LOPERAMIDE HYDROCHLORIDE
  5. COREG [Concomitant]
     Active Substance: CARVEDILOL
  6. DOXAZOSIN [Concomitant]
     Active Substance: DOXAZOSIN MESYLATE
  7. XARELTO [Concomitant]
     Active Substance: RIVAROXABAN
  8. MONTELUKAST [Concomitant]
     Active Substance: MONTELUKAST SODIUM
  9. DEXAMETHASONE [Concomitant]
     Active Substance: DEXAMETHASONE
  10. PROCHLORPERAZINE [Concomitant]
     Active Substance: PROCHLORPERAZINE
  11. ZOFRAN [Concomitant]
     Active Substance: ONDANSETRON HYDROCHLORIDE
  12. ACYCLOVIR [Concomitant]
     Active Substance: ACYCLOVIR
  13. PROT [Concomitant]
  14. PROTONIX [Concomitant]
     Active Substance: PANTOPRAZOLE SODIUM
  15. DARZALEX [Concomitant]
     Active Substance: DARATUMUMAB
  16. GABAPENTIN [Concomitant]
     Active Substance: GABAPENTIN
  17. BACTRIM [Concomitant]
     Active Substance: SULFAMETHOXAZOLE\TRIMETHOPRIM
  18. VITAMIN B12 [Concomitant]
     Active Substance: CYANOCOBALAMIN
  19. BENADRYL [Concomitant]
     Active Substance: DIPHENHYDRAMINE HYDROCHLORIDE
  20. ALBUTEROL [Concomitant]
     Active Substance: ALBUTEROL
  21. CALCIUM [Concomitant]
     Active Substance: CALCIUM
  22. ATORVASTATIN [Concomitant]
     Active Substance: ATORVASTATIN
  23. LASIX [Concomitant]
     Active Substance: FUROSEMIDE
  24. KCL [Concomitant]
     Active Substance: POTASSIUM CHLORIDE
  25. PROLIA [Concomitant]
     Active Substance: DENOSUMAB

REACTIONS (3)
  - Fluid retention [Unknown]
  - Fatigue [Unknown]
  - Off label use [Unknown]

NARRATIVE: CASE EVENT DATE: 20220224
